FAERS Safety Report 24244067 (Version 3)
Quarter: 2025Q2

REPORT INFORMATION
  Report Type: Report from Study
  Country: US (occurrence: US)
  Receive Date: 20240823
  Receipt Date: 20250425
  Transmission Date: 20250717
  Serious: Yes (Hospitalization)
  Sender: PFIZER
  Company Number: US-PFIZER INC-PV202400036950

PATIENT
  Age: 76 Year
  Sex: Male

DRUGS (3)
  1. VYNDAMAX [Suspect]
     Active Substance: TAFAMIDIS
  2. TORSEMIDE [Concomitant]
     Active Substance: TORSEMIDE
  3. TORSEMIDE [Concomitant]
     Active Substance: TORSEMIDE

REACTIONS (5)
  - Hypertension [Recovered/Resolved]
  - Chest pain [Recovered/Resolved]
  - Burning sensation [Recovered/Resolved]
  - Weight decreased [Not Recovered/Not Resolved]
  - Dizziness [Unknown]

NARRATIVE: CASE EVENT DATE: 20240101
